FAERS Safety Report 7875467-7 (Version None)
Quarter: 2011Q4

REPORT INFORMATION
  Report Type: 
  Country: None (occurrence: None)
  Receive Date: 20111031
  Receipt Date: 20111022
  Transmission Date: 20120403
  Serious: Yes (Hospitalization)
  Sender: FDA-Public Use
  Company Number: PHEH2011US07645

PATIENT
  Sex: Female

DRUGS (3)
  1. CAPTOPRIL AND HYDROCHLOROTHIAZIDE [Concomitant]
     Dosage: 25 MG, UNK
  2. EXJADE [Suspect]
     Indication: IRON METABOLISM DISORDER
     Dosage: 1000 MG, UNK
     Route: 048
     Dates: start: 20060526
  3. HYDROCORTISONE [Concomitant]
     Dosage: 05 MG, UNK

REACTIONS (1)
  - CYSTIC FIBROSIS [None]
